FAERS Safety Report 5331706-8 (Version None)
Quarter: 2007Q2

REPORT INFORMATION
  Report Type: 
  Country: None (occurrence: None)
  Receive Date: 20070516
  Receipt Date: 20070503
  Transmission Date: 20071010
  Serious: Yes (Other)
  Sender: FDA-Public Use
  Company Number: 2007AP000473

PATIENT
  Age: 17 Year
  Sex: Male

DRUGS (2)
  1. LITHIUM CARBONATE CAP [Suspect]
     Indication: SCHIZOPHRENIA, CATATONIC TYPE
     Dosage: 900 MG; QD; PO
     Route: 048
  2. ZIPRASIDONE [Suspect]
     Indication: SCHIZOPHRENIA, CATATONIC TYPE
     Dosage: 80 MG; BID;

REACTIONS (13)
  - ABNORMAL BEHAVIOUR [None]
  - ADVERSE DRUG REACTION [None]
  - COORDINATION ABNORMAL [None]
  - DELUSION [None]
  - DISORIENTATION [None]
  - DRUG ABUSER [None]
  - DRUG SCREEN POSITIVE [None]
  - EXTRAPYRAMIDAL DISORDER [None]
  - INAPPROPRIATE AFFECT [None]
  - MUTISM [None]
  - NEUROLEPTIC MALIGNANT SYNDROME [None]
  - REFUSAL OF TREATMENT BY RELATIVE [None]
  - SCHIZOAFFECTIVE DISORDER [None]
